FAERS Safety Report 5998018-0 (Version None)
Quarter: 2008Q4

REPORT INFORMATION
  Report Type: 
  Country: None (occurrence: None)
  Receive Date: 20081211
  Receipt Date: 20081201
  Transmission Date: 20090506
  Serious: No
  Sender: FDA-Public Use
  Company Number: US025119

PATIENT
  Age: 47 Year
  Sex: Male
  Weight: 111.1313 kg

DRUGS (12)
  1. FENTORA [Suspect]
     Indication: COMPLEX REGIONAL PAIN SYNDROME
     Dosage: 400 UG QID BUCCAL
     Route: 002
     Dates: start: 20060101
  2. NEURONTIN [Concomitant]
  3. CLONIDINE [Concomitant]
  4. TOPAMAX [Concomitant]
  5. CELEBREX [Concomitant]
  6. TIZANIDINE HCL [Concomitant]
  7. CYMBALTA [Concomitant]
  8. TRAZODONE [Concomitant]
  9. METHYLIN [Concomitant]
  10. LOTREL [Concomitant]
  11. PREVACID [Concomitant]
  12. OPANA [Concomitant]

REACTIONS (4)
  - DRUG INEFFECTIVE [None]
  - DRUG PRESCRIBING ERROR [None]
  - POOR QUALITY DRUG ADMINISTERED [None]
  - PRODUCT QUALITY ISSUE [None]
